FAERS Safety Report 18489089 (Version 1)
Quarter: 2020Q4

REPORT INFORMATION
  Report Type: Spontaneous
  Country: NL (occurrence: NL)
  Receive Date: 20201111
  Receipt Date: 20201111
  Transmission Date: 20210114
  Serious: Yes (Hospitalization, Other)
  Sender: FDA-Public Use
  Company Number: NL-AUROBINDO-AUR-APL-2020-055343

PATIENT
  Age: 69 Year
  Sex: Male

DRUGS (4)
  1. PHENYTOIN. [Suspect]
     Active Substance: PHENYTOIN
     Indication: SEIZURE
     Dosage: 300 MILLIGRAM, ONCE A DAY
     Route: 048
  2. PHENYTOIN. [Interacting]
     Active Substance: PHENYTOIN
     Dosage: 600 MILLIGRAM, ONCE A DAY
     Route: 042
  3. CIPROFLOXACINE [Concomitant]
     Active Substance: CIPROFLOXACIN
     Indication: PNEUMONIA
     Dosage: 800 MILLIGRAM, ONCE A DAY
     Route: 042
  4. PHENYTOIN. [Interacting]
     Active Substance: PHENYTOIN
     Dosage: 400 MILLIGRAM, ONCE A DAY
     Route: 042

REACTIONS (2)
  - Status epilepticus [Unknown]
  - Drug interaction [Unknown]
